FAERS Safety Report 10408242 (Version 1)
Quarter: 2014Q3

REPORT INFORMATION
  Report Type: Spontaneous
  Country: DE (occurrence: DE)
  Receive Date: 20140826
  Receipt Date: 20140826
  Transmission Date: 20150326
  Serious: Yes (Death)
  Sender: FDA-Public Use
  Company Number: DE-BEH-2014044550

PATIENT
  Age: 22 Year
  Sex: Female

DRUGS (1)
  1. BERIPLEX HS [Suspect]
     Active Substance: COAGULATION FACTOR IX HUMAN\COAGULATION FACTOR VII HUMAN\COAGULATION FACTOR X HUMAN\PROTEIN C\PROTEIN S HUMAN\PROTHROMBIN
     Indication: CARDIAC OPERATION

REACTIONS (13)
  - Disseminated intravascular coagulation [Fatal]
  - Cardiac ventricular thrombosis [Fatal]
  - Respiratory failure [Fatal]
  - Thrombocytopenia [Fatal]
  - Intracardiac thrombus [Fatal]
  - Pulmonary artery thrombosis [Fatal]
  - Acute right ventricular failure [Fatal]
  - Vena cava thrombosis [Fatal]
  - Dilatation ventricular [Fatal]
  - Blood pressure decreased [Fatal]
  - Platelet dysfunction [Fatal]
  - Atrial thrombosis [Fatal]
  - Circulatory collapse [Fatal]
